FAERS Safety Report 9286023 (Version 2)
Quarter: 2013Q2

REPORT INFORMATION
  Report Type: Spontaneous
  Country: US (occurrence: US)
  Receive Date: 20130513
  Receipt Date: 20130603
  Transmission Date: 20140414
  Serious: Yes (Hospitalization, Other)
  Sender: FDA-Public Use
  Company Number: US-BAXTER-2013BAX016863

PATIENT
  Age: 88 Year
  Sex: Female

DRUGS (1)
  1. DIANEAL LOW CALCIUM (ULTRABAG) [Suspect]
     Indication: PERITONEAL DIALYSIS
     Route: 033

REACTIONS (4)
  - Haemoglobin decreased [Unknown]
  - Feeling abnormal [Unknown]
  - Blood potassium decreased [Unknown]
  - Peritonitis [Recovering/Resolving]
